FAERS Safety Report 19763865 (Version 1)
Quarter: 2021Q3

REPORT INFORMATION
  Report Type: Spontaneous
  Country: DE (occurrence: DE)
  Receive Date: 20210830
  Receipt Date: 20210830
  Transmission Date: 20211014
  Serious: Yes (Other)
  Sender: FDA-Public Use
  Company Number: DE-BAYER-2021-200435

PATIENT
  Age: 32 Year
  Sex: Female
  Weight: 62 kg

DRUGS (1)
  1. KYLEENA [Suspect]
     Active Substance: LEVONORGESTREL
     Indication: INTRAUTERINE CONTRACEPTION
     Dosage: 17.5 ?G, CONT
     Route: 015
     Dates: start: 20200801, end: 20210430

REACTIONS (3)
  - Suicidal ideation [Recovered/Resolved]
  - Depressed mood [Recovered/Resolved]
  - Dizziness [Recovered/Resolved]

NARRATIVE: CASE EVENT DATE: 20200801
